FAERS Safety Report 10684521 (Version 2)
Quarter: 2015Q1

REPORT INFORMATION
  Report Type: Report from Study
  Country: CA (occurrence: CA)
  Receive Date: 20141231
  Receipt Date: 20150109
  Transmission Date: 20150720
  Serious: Yes (Other)
  Sender: FDA-Public Use
  Company Number: PHHO2014CA017187

PATIENT
  Age: 26 Year
  Sex: Female
  Weight: 64 kg

DRUGS (9)
  1. ERL 080A [Suspect]
     Active Substance: CYCLOSPORINE
     Indication: RENAL TRANSPLANT
     Dosage: 720 MG, BID
     Route: 065
     Dates: start: 20091209, end: 20100414
  2. RISEDRONATE [Concomitant]
     Active Substance: RISEDRONATE SODIUM
     Indication: PROPHYLAXIS
     Dosage: 35 MG, QW (PER WEEK)
     Route: 065
     Dates: start: 20090923
  3. PREDNISONE. [Suspect]
     Active Substance: PREDNISONE
     Indication: IMMUNOSUPPRESSION
     Dosage: 7.5 MG, DIE
     Route: 065
     Dates: start: 20090908
  4. CALCIUM [Concomitant]
     Active Substance: CALCIUM
     Indication: PROPHYLAXIS
     Dosage: 500 MG, DIE
     Route: 065
     Dates: start: 20090923
  5. ERL 080A [Suspect]
     Active Substance: CYCLOSPORINE
     Dosage: 360 MG, BID
     Route: 065
     Dates: start: 20100416, end: 20100528
  6. TACROLIMUS. [Suspect]
     Active Substance: TACROLIMUS
     Indication: IMMUNOSUPPRESSION
     Dosage: 5 MG-AM, 5.5 MG-PM
     Route: 065
     Dates: start: 20090908
  7. ALFACALCIDOL [Concomitant]
     Active Substance: ALFACALCIDOL
     Indication: PROPHYLAXIS
     Dosage: 0.5 UG, DIE
     Route: 065
     Dates: start: 20090923
  8. PANTOPRAZOLE [Concomitant]
     Active Substance: PANTOPRAZOLE SODIUM
     Indication: ABDOMINAL PAIN UPPER
     Dosage: 40 MG, DIE
     Route: 065
     Dates: start: 20090923
  9. AMLODIPINE [Concomitant]
     Active Substance: AMLODIPINE BESYLATE
     Indication: HYPERTENSION
     Dosage: 5 MG, DIE
     Route: 065
     Dates: start: 20091113

REACTIONS (2)
  - Drug intolerance [Recovered/Resolved]
  - Enterocolitis viral [Recovered/Resolved]

NARRATIVE: CASE EVENT DATE: 20100412
